FAERS Safety Report 7533698-X (Version None)
Quarter: 2011Q2

REPORT INFORMATION
  Report Type: 
  Country: None (occurrence: None)
  Receive Date: 20110608
  Receipt Date: 20110606
  Transmission Date: 20111010
  Serious: Yes (Death, Other)
  Sender: FDA-Public Use
  Company Number: NO-ABBOTT-11P-122-0730514-00

PATIENT
  Sex: Female

DRUGS (3)
  1. ABACAVIR SULFATE AND LAMIVUDINE [Concomitant]
     Indication: HIV INFECTION
     Route: 048
     Dates: start: 20010101
  2. DOCETAXEL [Interacting]
     Indication: BREAST CANCER
     Route: 051
  3. KALETRA [Suspect]
     Indication: HIV INFECTION
     Dosage: 2 DOSAGE FORMS DAILY
     Route: 048
     Dates: start: 20010101

REACTIONS (4)
  - BACTERIAL SEPSIS [None]
  - DRUG INTERACTION [None]
  - BREAST CANCER [None]
  - ORAL CANDIDIASIS [None]
